FAERS Safety Report 25468275 (Version 1)
Quarter: 2025Q2

REPORT INFORMATION
  Report Type: Spontaneous
  Country: US (occurrence: None)
  Receive Date: 20250620
  Receipt Date: 20250620
  Transmission Date: 20250716
  Serious: Yes (Other)
  Sender: FDA-CTU
  Company Number: None

PATIENT
  Age: 71 Year
  Sex: Male
  Weight: 90 kg

DRUGS (22)
  1. NUBEQA [Suspect]
     Active Substance: DAROLUTAMIDE
     Indication: Hormone-refractory prostate cancer
     Dosage: OTHER QUANTITY : 2 TABLET(S);?FREQUENCY : TWICE A DAY;?
     Route: 048
     Dates: start: 20250612, end: 20250616
  2. DULOXETINE [Suspect]
     Active Substance: DULOXETINE
  3. ESTRADIOL TRANSDERMAL SYSTEM [Suspect]
     Active Substance: ESTRADIOL
  4. LEUPROLIDE [Suspect]
     Active Substance: LEUPROLIDE
  5. XTANDI [Suspect]
     Active Substance: ENZALUTAMIDE
  6. BICALUTAMIDE [Suspect]
     Active Substance: BICALUTAMIDE
  7. METFORMIN [Concomitant]
     Active Substance: METFORMIN HYDROCHLORIDE
  8. IRBESARTAN [Concomitant]
     Active Substance: IRBESARTAN
  9. NEBIVOLOL [Concomitant]
     Active Substance: NEBIVOLOL
  10. ATORVASTATIN [Concomitant]
     Active Substance: ATORVASTATIN
  11. DICLOFENAC [Concomitant]
     Active Substance: DICLOFENAC
  12. FAMOTIDINE [Concomitant]
     Active Substance: FAMOTIDINE
  13. PREDNISONE [Concomitant]
     Active Substance: PREDNISONE
  14. ZOLPIDEM [Concomitant]
     Active Substance: ZOLPIDEM TARTRATE
  15. ALBUTEROL [Concomitant]
     Active Substance: ALBUTEROL
  16. METHOCARBAMOL [Concomitant]
     Active Substance: METHOCARBAMOL
  17. CETIRIZINE [Concomitant]
     Active Substance: CETIRIZINE HYDROCHLORIDE
  18. VITAMIN D3 [Concomitant]
     Active Substance: CHOLECALCIFEROL
  19. BIOTIN [Concomitant]
     Active Substance: BIOTIN
  20. MAGNESIUM [Concomitant]
     Active Substance: MAGNESIUM
  21. ACETAMINOPHEN [Concomitant]
     Active Substance: ACETAMINOPHEN
  22. hypromellose eye gel [Concomitant]

REACTIONS (9)
  - Depressed mood [None]
  - Crying [None]
  - Drug interaction [None]
  - Mood altered [None]
  - Apathy [None]
  - Fatigue [None]
  - Prostatic specific antigen increased [None]
  - Drug withdrawal syndrome [None]
  - Drug resistance [None]

NARRATIVE: CASE EVENT DATE: 20250616
